FAERS Safety Report 10189593 (Version 1)
Quarter: 2014Q2

REPORT INFORMATION
  Report Type: Spontaneous
  Country: US (occurrence: US)
  Receive Date: 20140522
  Receipt Date: 20140522
  Transmission Date: 20141212
  Serious: Yes (Hospitalization)
  Sender: FDA-Public Use
  Company Number: US-GLAXOSMITHKLINE-A1073967A

PATIENT
  Age: 76 Year
  Sex: Female

DRUGS (6)
  1. VOTRIENT [Suspect]
     Indication: UTERINE CANCER
     Dosage: 800MG PER DAY
     Route: 048
     Dates: start: 20140111
  2. FENTANYL [Concomitant]
  3. OXYCODONE [Concomitant]
  4. METOPROLOL [Concomitant]
  5. SYNTHROID [Concomitant]
  6. AMLODIPINE [Concomitant]

REACTIONS (1)
  - Lung disorder [Unknown]
